FAERS Safety Report 4599943-8 (Version None)
Quarter: 2005Q1

REPORT INFORMATION
  Report Type: 
  Country: None (occurrence: None)
  Receive Date: 20050307
  Receipt Date: 20041119
  Transmission Date: 20050727
  Serious: Yes (Disabling, Other)
  Sender: FDA-Public Use
  Company Number: US-MERCK-0411USA03382

PATIENT
  Age: 80 Year
  Sex: Male

DRUGS (8)
  1. COSOPT [Suspect]
     Indication: GLAUCOMA
     Route: 047
     Dates: start: 20000401, end: 20020101
  2. COSOPT [Suspect]
     Route: 047
     Dates: start: 20020101, end: 20040101
  3. PRED FORTE [Concomitant]
     Route: 065
  4. LIPITOR [Concomitant]
     Route: 065
  5. ATENOLOL [Concomitant]
     Route: 065
  6. ASPIRIN [Concomitant]
     Route: 065
  7. DIOVAN [Concomitant]
     Route: 065
  8. XALATAN [Concomitant]
     Route: 047

REACTIONS (3)
  - CORNEAL OEDEMA [None]
  - GLAUCOMA [None]
  - VISUAL ACUITY REDUCED [None]
